FAERS Safety Report 10229630 (Version 2)
Quarter: 2014Q3

REPORT INFORMATION
  Report Type: Spontaneous
  Country: US (occurrence: None)
  Receive Date: 20140609
  Receipt Date: 20140722
  Transmission Date: 20150326
  Serious: Yes (Hospitalization)
  Sender: FDA-Public Use
  Company Number: US-001027

PATIENT
  Age: 25 Year
  Sex: Female

DRUGS (10)
  1. IRON [Concomitant]
     Active Substance: IRON
  2. IMODIUM [Concomitant]
     Active Substance: LOPERAMIDE HYDROCHLORIDE
  3. ANTIHYPERTENSIVES [Concomitant]
     Active Substance: UNSPECIFIED INGREDIENT
  4. TOPICAL PRODUCTS FOR JOINT AND MUSCULAR PAIN [Concomitant]
  5. VITAMIN D [Concomitant]
     Active Substance: CHOLECALCIFEROL
  6. PRILOSEC [Concomitant]
     Active Substance: OMEPRAZOLE MAGNESIUM
  7. SOLUTIONS FOR PARENTERAL NUTRITION [Concomitant]
     Active Substance: AMINO ACIDS\DEXTROSE\ELECTROLYTES NOS
  8. XANAX [Concomitant]
     Active Substance: ALPRAZOLAM
  9. ZOFRAN [Concomitant]
     Active Substance: ONDANSETRON HYDROCHLORIDE
  10. GATTEX [Suspect]
     Active Substance: TEDUGLUTIDE\WATER
     Indication: SHORT-BOWEL SYNDROME
     Dosage: 0.23 ML QD, STREN/VOLUM: 0.23 ML/ FREQU: 1 X DAY SUBCUTANEOUS
     Route: 058
     Dates: start: 20140422, end: 201405

REACTIONS (13)
  - Erythema [None]
  - Infected cyst [None]
  - Aphagia [None]
  - Gastrointestinal stoma complication [None]
  - Pruritus [None]
  - Vomiting [None]
  - Crohn^s disease [None]
  - Pyrexia [None]
  - Musculoskeletal pain [None]
  - Tenderness [None]
  - Haemorrhage [None]
  - Pelvic abscess [None]
  - Dehydration [None]

NARRATIVE: CASE EVENT DATE: 20140505
